FAERS Safety Report 12798898 (Version 3)
Quarter: 2019Q3

REPORT INFORMATION
  Report Type: Spontaneous
  Country: US (occurrence: US)
  Receive Date: 20160930
  Receipt Date: 20190912
  Transmission Date: 20191004
  Serious: Yes (Other)
  Sender: FDA-Public Use
  Company Number: US-ASTELLAS-2016US037843

PATIENT
  Sex: Male

DRUGS (2)
  1. XTANDI [Suspect]
     Active Substance: ENZALUTAMIDE
     Indication: PROSTATE CANCER
     Route: 048
     Dates: start: 20160922
  2. AMITRIPTYLINE [Suspect]
     Active Substance: AMITRIPTYLINE
     Indication: INSOMNIA
     Dosage: UNK UNK, UNKNOWN FREQ.
     Route: 065

REACTIONS (9)
  - Upper limb fracture [Unknown]
  - Decreased appetite [Unknown]
  - Fatigue [Unknown]
  - Dizziness [Unknown]
  - Balance disorder [Unknown]
  - Vertigo [Unknown]
  - Nausea [Unknown]
  - Nightmare [Recovered/Resolved]
  - Weight decreased [Unknown]
